FAERS Safety Report 16914921 (Version 1)
Quarter: 2019Q4

REPORT INFORMATION
  Report Type: Spontaneous
  Country: GB (occurrence: GB)
  Receive Date: 20191014
  Receipt Date: 20191014
  Transmission Date: 20200122
  Serious: Yes (Other)
  Sender: FDA-Public Use
  Company Number: GB-MYLANLABS-2019M1095379

PATIENT
  Age: 61 Year
  Sex: Male
  Weight: 74 kg

DRUGS (3)
  1. AMLODIPINE [Concomitant]
     Active Substance: AMLODIPINE BESYLATE
     Dosage: 10 MILLIGRAM, QD
  2. EFUDIX [Suspect]
     Active Substance: FLUOROURACIL
     Indication: PHOTODERMATOSIS
     Dosage: THIN FILM ON SCALP
     Route: 061
     Dates: start: 20190523
  3. ATORVASTATIN [Concomitant]
     Active Substance: ATORVASTATIN
     Dosage: 20 MILLIGRAM, QD

REACTIONS (2)
  - Lacrimation increased [Unknown]
  - Eye pain [Unknown]

NARRATIVE: CASE EVENT DATE: 20190610
